FAERS Safety Report 5762065-4 (Version None)
Quarter: 2008Q2

REPORT INFORMATION
  Report Type: 
  Country: None (occurrence: None)
  Receive Date: 20080604
  Receipt Date: 20080526
  Transmission Date: 20081010
  Serious: Yes (Other)
  Sender: FDA-Public Use
  Company Number: 2008AP000348

PATIENT
  Age: 33 Year
  Sex: Female

DRUGS (11)
  1. PAROXETINE HCL [Suspect]
     Dosage: SEE IMAGE
     Route: 048
     Dates: start: 19960702
  2. PAROXETINE HCL [Suspect]
     Dosage: SEE IMAGE
     Route: 048
     Dates: start: 19960702
  3. PAROXETINE HCL [Suspect]
     Dosage: SEE IMAGE
     Route: 048
     Dates: start: 19970701
  4. PAROXETINE HCL [Suspect]
     Dosage: SEE IMAGE
     Route: 048
     Dates: start: 20000201
  5. PAROXETINE HCL [Suspect]
     Dosage: SEE IMAGE
     Route: 048
     Dates: start: 20000901
  6. PAROXETINE HCL [Suspect]
     Dosage: SEE IMAGE
     Route: 048
     Dates: start: 20040813
  7. PAROXETINE HCL [Suspect]
     Dosage: SEE IMAGE
     Route: 048
     Dates: start: 20051201
  8. PAROXETINE HCL [Suspect]
     Dosage: SEE IMAGE
     Route: 048
     Dates: start: 20080401
  9. DIAZEPAM [Concomitant]
  10. LANSOPRAZOLE [Concomitant]
  11. RANITIDINE [Concomitant]

REACTIONS (27)
  - AGGRESSION [None]
  - ANXIETY [None]
  - APATHY [None]
  - CRYING [None]
  - DECREASED APPETITE [None]
  - DEPRESSED MOOD [None]
  - DISTURBANCE IN ATTENTION [None]
  - DIZZINESS [None]
  - DRUG INTOLERANCE [None]
  - DRUG WITHDRAWAL SYNDROME [None]
  - DRY MOUTH [None]
  - DYSPEPSIA [None]
  - FEELING ABNORMAL [None]
  - GASTROOESOPHAGEAL REFLUX DISEASE [None]
  - HEADACHE [None]
  - HYPERSOMNIA [None]
  - ILL-DEFINED DISORDER [None]
  - MECHANICAL COMPLICATION OF IMPLANT [None]
  - MUSCLE FATIGUE [None]
  - NAUSEA [None]
  - NONSPECIFIC REACTION [None]
  - PANIC ATTACK [None]
  - PREMENSTRUAL SYNDROME [None]
  - SMEAR SITE UNSPECIFIED ABNORMAL [None]
  - SUICIDAL IDEATION [None]
  - VISUAL DISTURBANCE [None]
  - VOMITING [None]
